FAERS Safety Report 18078337 (Version 6)
Quarter: 2021Q1

REPORT INFORMATION
  Report Type: Report from Study
  Country: US (occurrence: US)
  Receive Date: 20200727
  Receipt Date: 20210114
  Transmission Date: 20210419
  Serious: Yes (Hospitalization, Other)
  Sender: FDA-Public Use
  Company Number: NVSC2020US208519

PATIENT
  Age: 49 Year
  Sex: Female
  Weight: 117.91 kg

DRUGS (1)
  1. COSENTYX [Suspect]
     Active Substance: SECUKINUMAB
     Indication: PSORIATIC ARTHROPATHY
     Dosage: 300 MG, QMO (EVERY 4 WEEKS)
     Route: 058

REACTIONS (11)
  - Staphylococcal infection [Recovering/Resolving]
  - Wound infection [Recovering/Resolving]
  - Arthritis bacterial [Unknown]
  - Arthralgia [Not Recovered/Not Resolved]
  - Bursitis [Unknown]
  - Post procedural infection [Unknown]
  - Gastroenteritis Escherichia coli [Unknown]
  - Medical device site inflammation [Unknown]
  - Osteoarthritis [Unknown]
  - Escherichia infection [Recovering/Resolving]
  - Wound dehiscence [Recovering/Resolving]

NARRATIVE: CASE EVENT DATE: 20191204
